FAERS Safety Report 9169326 (Version 4)
Quarter: 2013Q3

REPORT INFORMATION
  Report Type: Spontaneous
  Country: US (occurrence: US)
  Receive Date: 20130318
  Receipt Date: 20130816
  Transmission Date: 20140515
  Serious: Yes (Hospitalization)
  Sender: FDA-Public Use
  Company Number: US-B.I. PHARMACEUTICALS,INC./RIDGEFIELD-2013-BI-06654BP

PATIENT
  Age: 76 Year
  Sex: Male
  Weight: 72.57 kg

DRUGS (9)
  1. PRADAXA [Suspect]
     Indication: ATRIAL FIBRILLATION
     Dosage: 150 MG
     Route: 048
     Dates: start: 20111130, end: 20111209
  2. COMBIVENT [Concomitant]
     Dates: start: 2008, end: 2012
  3. ASPIRIN [Concomitant]
  4. LIPITOR [Concomitant]
  5. DULCOLAX [Concomitant]
  6. COREG [Concomitant]
  7. HYDRALAZINE [Concomitant]
  8. IMDUR [Concomitant]
  9. ALBUTEROL [Concomitant]

REACTIONS (1)
  - Gastrointestinal haemorrhage [Unknown]
